FAERS Safety Report 6731751-1 (Version None)
Quarter: 2010Q2

REPORT INFORMATION
  Report Type: 
  Country: None (occurrence: None)
  Receive Date: 20100519
  Receipt Date: 20100512
  Transmission Date: 20101027
  Serious: Yes (Hospitalization)
  Sender: FDA-Public Use
  Company Number: DE-PFIZER INC-2010059512

PATIENT
  Sex: Male

DRUGS (1)
  1. SORTIS [Suspect]
     Dosage: 10 MG/ UNK
     Route: 048
     Dates: start: 20000101, end: 20100401

REACTIONS (4)
  - GAIT DISTURBANCE [None]
  - IMPAIRED HEALING [None]
  - MUSCULAR WEAKNESS [None]
  - TENDON RUPTURE [None]
